FAERS Safety Report 26052831 (Version 1)
Quarter: 2025Q4

REPORT INFORMATION
  Report Type: Report from Study
  Country: JP (occurrence: JP)
  Receive Date: 20251117
  Receipt Date: 20251117
  Transmission Date: 20260117
  Serious: Yes (Other)
  Sender: JOHNSON AND JOHNSON
  Company Number: JP-JNJFOC-20241100365

PATIENT
  Age: 70 Year
  Sex: Female

DRUGS (6)
  1. RYBREVANT [Suspect]
     Active Substance: AMIVANTAMAB-VMJW
     Indication: EGFR gene mutation
     Dosage: 1COURSE,DAY1
     Route: 041
     Dates: start: 20241028, end: 20241028
  2. RYBREVANT [Suspect]
     Active Substance: AMIVANTAMAB-VMJW
     Dosage: DOSE UNKNOWN,1COURSE,DAY2
     Route: 041
     Dates: start: 20241029, end: 20241029
  3. RYBREVANT [Suspect]
     Active Substance: AMIVANTAMAB-VMJW
     Dosage: DOSE UNKNOWN
     Route: 041
     Dates: start: 2024
  4. RYBREVANT [Suspect]
     Active Substance: AMIVANTAMAB-VMJW
     Dosage: DOSE UNKNOWN,2COURSE
     Route: 041
  5. CARBOPLATIN [Suspect]
     Active Substance: CARBOPLATIN
     Indication: Product used for unknown indication
     Dosage: AUC5, DOSE UNKNOWN
     Route: 041
     Dates: start: 20241028
  6. PEMETREXED [Suspect]
     Active Substance: PEMETREXED
     Indication: Product used for unknown indication
     Route: 041
     Dates: start: 20241028

REACTIONS (4)
  - Infusion related reaction [Recovered/Resolved]
  - Blood pressure decreased [Recovered/Resolved]
  - Oxygen saturation decreased [Recovered/Resolved]
  - Paronychia [Unknown]

NARRATIVE: CASE EVENT DATE: 20241028
